FAERS Safety Report 21035632 (Version 2)
Quarter: 2022Q3

REPORT INFORMATION
  Report Type: Report from Study
  Country: BR (occurrence: BR)
  Receive Date: 20220701
  Receipt Date: 20220707
  Transmission Date: 20221027
  Serious: Yes (Other)
  Sender: FDA-Public Use
  Company Number: BR-TAKEDA-2022TUS044059

PATIENT
  Age: 28 Year

DRUGS (1)
  1. ANTI-INHIBITOR COAGULANT COMPLEX [Suspect]
     Active Substance: ANTI-INHIBITOR COAGULANT COMPLEX
     Indication: Factor VIII deficiency
     Dosage: 100 MICROGRAM, 3/WEEK
     Route: 065
     Dates: start: 202106, end: 202109

REACTIONS (1)
  - Haemorrhage [Unknown]
